FAERS Safety Report 10259430 (Version 3)
Quarter: 2015Q2

REPORT INFORMATION
  Report Type: Spontaneous
  Country: US (occurrence: US)
  Receive Date: 20140625
  Receipt Date: 20150622
  Transmission Date: 20150821
  Serious: No
  Sender: FDA-Public Use
  Company Number: US-ASTELLAS-2014US005941

PATIENT
  Sex: Female

DRUGS (2)
  1. VESICARE [Suspect]
     Active Substance: SOLIFENACIN SUCCINATE
     Route: 048
     Dates: start: 201405, end: 20140529
  2. VESICARE [Suspect]
     Active Substance: SOLIFENACIN SUCCINATE
     Indication: HYPERTONIC BLADDER
     Route: 048
     Dates: start: 20140521

REACTIONS (7)
  - Oropharyngeal pain [Recovering/Resolving]
  - Inappropriate schedule of drug administration [Unknown]
  - Abdominal pain [Recovered/Resolved]
  - Dry mouth [Recovering/Resolving]
  - Memory impairment [Recovering/Resolving]
  - Vision blurred [Recovering/Resolving]
  - Flatulence [Not Recovered/Not Resolved]

NARRATIVE: CASE EVENT DATE: 201405
